FAERS Safety Report 4332398-7 (Version None)
Quarter: 2004Q2

REPORT INFORMATION
  Report Type: 
  Country: None (occurrence: None)
  Receive Date: 20040401
  Receipt Date: 20040318
  Transmission Date: 20050107
  Serious: Yes (Hospitalization)
  Sender: FDA-Public Use
  Company Number: K200400410

PATIENT
  Age: 46 Year
  Sex: Female

DRUGS (3)
  1. NORDETTE-21 [Suspect]
     Dosage: 1 TABLET, QD, ORAL
     Route: 048
     Dates: start: 19980630
  2. IBUPROFEN [Suspect]
     Indication: ABDOMINAL PAIN
     Dosage: PRN, ORAL
     Route: 048
     Dates: start: 20020630, end: 20040101
  3. PARIET (RABEPRAZOLE SODIUM) [Suspect]
     Indication: ABDOMINAL PAIN UPPER
     Dosage: PRN, ORAL
     Route: 048
     Dates: start: 20031220, end: 20040101

REACTIONS (2)
  - CHOLANGITIS SCLEROSING [None]
  - HEPATITIS [None]
